FAERS Safety Report 22229970 (Version 1)
Quarter: 2023Q2

REPORT INFORMATION
  Report Type: Spontaneous
  Country: US (occurrence: US)
  Receive Date: 20230419
  Receipt Date: 20230419
  Transmission Date: 20230722
  Serious: Yes (Other)
  Sender: FDA-Public Use
  Company Number: US-AMERICAN REGENT INC-2023000913

PATIENT
  Age: 63 Year
  Sex: Female
  Weight: 61.4 kg

DRUGS (8)
  1. VENOFER [Suspect]
     Active Substance: IRON SUCROSE
     Indication: Product used for unknown indication
     Dosage: UNK
     Route: 042
  2. VENOFER [Suspect]
     Active Substance: IRON SUCROSE
     Dosage: EVERY TREATMENT (100 MG)
     Dates: start: 20230110, end: 20230110
  3. MIRCERA [Suspect]
     Active Substance: METHOXY POLYETHYLENE GLYCOL-EPOETIN BETA
     Indication: Product used for unknown indication
     Dosage: UNK
     Route: 065
  4. MIRCERA [Suspect]
     Active Substance: METHOXY POLYETHYLENE GLYCOL-EPOETIN BETA
     Dosage: 75 MCG, 1 IN 2 WK
     Dates: start: 20221227, end: 20221227
  5. MIRCERA [Suspect]
     Active Substance: METHOXY POLYETHYLENE GLYCOL-EPOETIN BETA
     Dosage: DOSE 5: 60 MCG,1 IN 2 WK
     Dates: start: 20230110, end: 20230110
  6. HEPARIN SODIUM [Concomitant]
     Active Substance: HEPARIN SODIUM
     Indication: Product used for unknown indication
     Dosage: 3000 UNITS HEPARIN SODIUM (PORCINE) STRENGTH 1000 UNITS/ML SYSTEMIC
     Dates: start: 20230110
  7. HEPARIN SODIUM [Concomitant]
     Active Substance: HEPARIN SODIUM
     Dosage: 2200/ARTERIAL RED PORT; 2200/ VENOUS BLUE PORT; HEPARIN SODIUM (PORCINE) 1000 UNITS/ML CATHETER LOCK
     Dates: start: 20230110
  8. HECTOROL [Concomitant]
     Active Substance: DOXERCALCIFEROL
     Indication: Product used for unknown indication
     Dosage: 3X WEEK (2 MCG,3 IN 1 WK)
     Dates: start: 20230110

REACTIONS (5)
  - Respiratory distress [Unknown]
  - Drug hypersensitivity [Recovered/Resolved]
  - Malaise [Unknown]
  - Feeling abnormal [Unknown]
  - Chest pain [Unknown]

NARRATIVE: CASE EVENT DATE: 20230110
